FAERS Safety Report 19106950 (Version 8)
Quarter: 2021Q3

REPORT INFORMATION
  Report Type: Report from Study
  Country: US (occurrence: US)
  Receive Date: 20210408
  Receipt Date: 20210910
  Transmission Date: 20211014
  Serious: Yes (Hospitalization)
  Sender: FDA-Public Use
  Company Number: US-ROCHE-2804663

PATIENT
  Age: 53 Year
  Sex: Male
  Weight: 70.1 kg

DRUGS (32)
  1. NT?17 [Suspect]
     Active Substance: EFINEPTAKIN ALFA
     Indication: SKIN CANCER
     Dosage: 120 MCG/KG
     Route: 030
     Dates: start: 20201209
  2. NT?17 [Suspect]
     Active Substance: EFINEPTAKIN ALFA
     Route: 030
     Dates: start: 20210122
  3. NT?17 [Suspect]
     Active Substance: EFINEPTAKIN ALFA
     Route: 030
     Dates: start: 20210505
  4. MORPHINE [Concomitant]
     Active Substance: MORPHINE
     Indication: PAIN
     Dates: start: 202011
  5. NORMAL SALINE [Concomitant]
     Active Substance: SODIUM CHLORIDE
     Indication: DEHYDRATION
     Dosage: 1000ML X1 IV FLUIDS
     Route: 042
     Dates: start: 20210323, end: 20210323
  6. ONDANSETRON [Concomitant]
     Active Substance: ONDANSETRON
     Indication: NAUSEA
     Route: 042
     Dates: start: 20210323, end: 20210323
  7. MARINOL [Concomitant]
     Active Substance: DRONABINOL
     Route: 048
     Dates: start: 20210426, end: 20210503
  8. ATEZOLIZUMAB. [Suspect]
     Active Substance: ATEZOLIZUMAB
     Indication: SKIN CANCER
     Route: 041
     Dates: start: 20201209
  9. ATEZOLIZUMAB. [Suspect]
     Active Substance: ATEZOLIZUMAB
     Route: 065
     Dates: start: 20210414
  10. MEGESTROL [Concomitant]
     Active Substance: MEGESTROL
     Indication: DECREASED APPETITE
     Dates: start: 202011
  11. TYLENOL [Concomitant]
     Active Substance: ACETAMINOPHEN
     Indication: PAIN
     Dates: start: 202010
  12. LORAZEPAM. [Concomitant]
     Active Substance: LORAZEPAM
     Indication: ANXIETY
     Dates: start: 202011
  13. MODAFINIL. [Concomitant]
     Active Substance: MODAFINIL
     Indication: FATIGUE
     Dates: start: 20201223
  14. SPIRONOLACTONE. [Concomitant]
     Active Substance: SPIRONOLACTONE
     Indication: OEDEMA
     Dates: start: 20210204
  15. NALOXONE [Concomitant]
     Active Substance: NALOXONE
     Route: 065
     Dates: start: 20210330
  16. FENTANYL. [Concomitant]
     Active Substance: FENTANYL
     Indication: PAIN
     Route: 061
     Dates: start: 20210330
  17. SENNA [Concomitant]
     Active Substance: SENNA LEAF\SENNOSIDES\SENNOSIDES A AND B
     Indication: CONSTIPATION
     Route: 048
     Dates: start: 20210330
  18. NT?17 [Suspect]
     Active Substance: EFINEPTAKIN ALFA
     Route: 030
     Dates: start: 20210414
  19. POLYETHYLENE GLYCOL [Concomitant]
     Active Substance: POLYETHYLENE GLYCOLS
     Indication: CONSTIPATION
     Route: 048
  20. NT?17 [Suspect]
     Active Substance: EFINEPTAKIN ALFA
     Route: 030
     Dates: start: 20201230
  21. MORPHINE [Concomitant]
     Active Substance: MORPHINE
     Route: 048
     Dates: start: 20210301
  22. FUROSEMIDE. [Concomitant]
     Active Substance: FUROSEMIDE
     Indication: OEDEMA
     Dates: start: 20210201
  23. ATEZOLIZUMAB. [Suspect]
     Active Substance: ATEZOLIZUMAB
     Route: 041
     Dates: start: 20201230
  24. OMEPRAZOLE. [Concomitant]
     Active Substance: OMEPRAZOLE
     Indication: VOMITING
     Dates: start: 202010
  25. PROMETHAZINE [Concomitant]
     Active Substance: PROMETHAZINE HYDROCHLORIDE
     Indication: NAUSEA
     Dates: start: 202009
  26. CREON [Concomitant]
     Active Substance: PANCRELIPASE AMYLASE\PANCRELIPASE LIPASE\PANCRELIPASE PROTEASE
     Dates: start: 20210322
  27. ATEZOLIZUMAB. [Suspect]
     Active Substance: ATEZOLIZUMAB
     Route: 041
     Dates: start: 20210505
  28. NEURONTIN [Concomitant]
     Active Substance: GABAPENTIN
     Indication: PAIN
     Dates: start: 202011
  29. LEVOTHYROXINE. [Concomitant]
     Active Substance: LEVOTHYROXINE
     Indication: HYPOTHYROIDISM
     Dates: start: 20201124
  30. ATEZOLIZUMAB. [Suspect]
     Active Substance: ATEZOLIZUMAB
     Route: 041
     Dates: start: 20210122
  31. MORPHINE [Concomitant]
     Active Substance: MORPHINE
     Dosage: 5 ML TO 7.5 ML
     Route: 048
     Dates: start: 20210330
  32. METOCLOPRAMIDE HCL [Concomitant]
     Active Substance: METOCLOPRAMIDE HYDROCHLORIDE
     Indication: NAUSEA
     Route: 048
     Dates: start: 20210315

REACTIONS (9)
  - Nausea [Recovered/Resolved]
  - Failure to thrive [Recovered/Resolved]
  - Asthenia [Not Recovered/Not Resolved]
  - Vomiting [Recovered/Resolved]
  - Dehydration [Recovered/Resolved]
  - Nausea [Recovered/Resolved]
  - Abdominal pain [Recovered/Resolved]
  - Sepsis [Recovered/Resolved]
  - Vomiting [Recovered/Resolved]

NARRATIVE: CASE EVENT DATE: 20210326
